FAERS Safety Report 9904221 (Version 1)
Quarter: 2014Q1

REPORT INFORMATION
  Report Type: Spontaneous
  Country: HU (occurrence: HU)
  Receive Date: 20140218
  Receipt Date: 20140218
  Transmission Date: 20141002
  Serious: Yes (Other)
  Sender: FDA-Public Use
  Company Number: HU-ROCHE-1349361

PATIENT
  Age: 81 Year
  Sex: Male

DRUGS (10)
  1. AVASTIN [Suspect]
     Indication: AGE-RELATED MACULAR DEGENERATION
     Route: 050
     Dates: start: 20130422, end: 20130422
  2. PANTOPRAZOLE [Concomitant]
     Indication: ANTACID THERAPY
     Route: 048
  3. EBRANTIL [Concomitant]
     Indication: HYPERTENSION
     Dosage: PROLONGED-RELEASE CAPSULE
     Route: 048
  4. FRONTIN [Concomitant]
     Indication: SEDATIVE THERAPY
     Route: 048
  5. FURON [Concomitant]
     Indication: HYPERTENSION
     Route: 048
  6. KALDYUM [Concomitant]
     Indication: DIURETIC THERAPY
     Dosage: PROLONGED-RELEASE CAPSULE HARD
     Route: 048
  7. LOKREN [Concomitant]
     Indication: HYPERTENSION
     Route: 048
  8. MILURIT [Concomitant]
     Indication: GOUT
     Route: 048
  9. TENAXUM [Concomitant]
     Indication: HYPERTENSION
     Route: 048
  10. VALSOCARD [Concomitant]
     Indication: HYPERTENSION
     Dosage: FILM-COATED TABLET
     Route: 048

REACTIONS (2)
  - Hepatic cancer recurrent [Unknown]
  - Off label use [Unknown]
